FAERS Safety Report 13290674 (Version 2)
Quarter: 2017Q1

REPORT INFORMATION
  Report Type: Spontaneous
  Country: US (occurrence: US)
  Receive Date: 20170302
  Receipt Date: 20170322
  Transmission Date: 20170428
  Serious: No
  Sender: FDA-Public Use
  Company Number: US-TEVA-742627ACC

PATIENT
  Age: 48 Year
  Sex: Female

DRUGS (13)
  1. NEURONTIN [Concomitant]
     Active Substance: GABAPENTIN
     Dates: start: 20120112
  2. KEPPRA [Concomitant]
     Active Substance: LEVETIRACETAM
     Dates: start: 20120112
  3. COPAXONE [Suspect]
     Active Substance: GLATIRAMER ACETATE
     Indication: MULTIPLE SCLEROSIS
     Route: 058
     Dates: start: 2008
  4. OXYCODONE [Concomitant]
     Active Substance: OXYCODONE
     Dates: start: 20120112
  5. OMEPRAZOL [Concomitant]
     Active Substance: OMEPRAZOLE
     Dates: start: 20120112
  6. PAXIL [Concomitant]
     Active Substance: PAROXETINE HYDROCHLORIDE
     Dates: start: 20120112
  7. FLUCONAZOLE/INJ NACL [Concomitant]
     Dosage: 400
     Dates: start: 20120112
  8. LISINOPRIL. [Concomitant]
     Active Substance: LISINOPRIL
     Dates: start: 20120112
  9. LAXATIVES [Concomitant]
     Active Substance: UNSPECIFIED INGREDIENT
     Dates: start: 20120112
  10. OXYCONTIN [Concomitant]
     Active Substance: OXYCODONE HYDROCHLORIDE
     Dosage: CR
     Dates: start: 20120112
  11. FENTANYL. [Concomitant]
     Active Substance: FENTANYL
     Dosage: 12MCG/HR
     Dates: start: 20160516
  12. AMITRIPTYLINE [Concomitant]
     Active Substance: AMITRIPTYLINE
     Dates: start: 20120112
  13. CITALOPRAM [Concomitant]
     Active Substance: CITALOPRAM HYDROBROMIDE
     Dates: start: 20120112

REACTIONS (3)
  - Injection site reaction [Unknown]
  - Dizziness [Unknown]
  - Injection site atrophy [Not Recovered/Not Resolved]

NARRATIVE: CASE EVENT DATE: 201701
